FAERS Safety Report 15930567 (Version 1)
Quarter: 2019Q1

REPORT INFORMATION
  Report Type: Spontaneous
  Country: US (occurrence: US)
  Receive Date: 20190207
  Receipt Date: 20190207
  Transmission Date: 20190417
  Serious: Yes (Other)
  Sender: FDA-Public Use
  Company Number: US-TEVA-2019-US-1009298

PATIENT
  Age: 49 Year
  Sex: Female

DRUGS (1)
  1. AJOVY [Suspect]
     Active Substance: FREMANEZUMAB-VFRM
     Indication: MIGRAINE
     Dosage: FIRST INJECTION OF AJOVY
     Dates: start: 20190131

REACTIONS (4)
  - Loss of consciousness [Unknown]
  - Somnambulism [Unknown]
  - Sleep talking [Unknown]
  - Amnesia [Unknown]

NARRATIVE: CASE EVENT DATE: 20190131
